FAERS Safety Report 12077506 (Version 1)
Quarter: 2016Q1

REPORT INFORMATION
  Report Type: Spontaneous
  Country: US (occurrence: US)
  Receive Date: 20160215
  Receipt Date: 20160215
  Transmission Date: 20160526
  Serious: Yes (Hospitalization)
  Sender: FDA-Public Use
  Company Number: US-JNJFOC-20160201294

PATIENT
  Age: 55 Year
  Sex: Female
  Weight: 124.74 kg

DRUGS (3)
  1. TYLENOL COLD PLUS MUCUS SEVERE [Suspect]
     Active Substance: ACETAMINOPHEN\DEXTROMETHORPHAN HYDROBROMIDE\GUAIFENESIN\PHENYLEPHRINE HYDROCHLORIDE
     Indication: NASOPHARYNGITIS
     Route: 048
     Dates: start: 20160130
  2. VITAMINS NOS [Concomitant]
     Active Substance: VITAMINS
     Indication: ROUTINE HEALTH MAINTENANCE
     Route: 065
  3. TYLENOL COLD PLUS MUCUS SEVERE [Suspect]
     Active Substance: ACETAMINOPHEN\DEXTROMETHORPHAN HYDROBROMIDE\GUAIFENESIN\PHENYLEPHRINE HYDROCHLORIDE
     Indication: NASOPHARYNGITIS
     Dosage: 1.5 TABLESPOON TWO TIMES A DAY.
     Route: 048
     Dates: start: 20160116, end: 20160119

REACTIONS (9)
  - Feeling abnormal [Not Recovered/Not Resolved]
  - Nausea [Unknown]
  - Morbid thoughts [Not Recovered/Not Resolved]
  - Abdominal discomfort [Not Recovered/Not Resolved]
  - Self-medication [None]
  - Fall [Unknown]
  - Drug administration error [Not Recovered/Not Resolved]
  - Vomiting [Not Recovered/Not Resolved]
  - Salivary hypersecretion [Not Recovered/Not Resolved]

NARRATIVE: CASE EVENT DATE: 2016
